FAERS Safety Report 18430084 (Version 1)
Quarter: 2020Q4

REPORT INFORMATION
  Report Type: Spontaneous
  Country: MY (occurrence: MY)
  Receive Date: 20201027
  Receipt Date: 20201027
  Transmission Date: 20210114
  Serious: Yes (Death)
  Sender: FDA-Public Use
  Company Number: MY-PFIZER INC-2020412121

PATIENT
  Age: 70 Year
  Sex: Female
  Weight: 41.5 kg

DRUGS (8)
  1. MEROPENEM. [Suspect]
     Active Substance: MEROPENEM
     Indication: FEBRILE NEUTROPENIA
     Dosage: UNK
  2. VFEND [Concomitant]
     Active Substance: VORICONAZOLE
     Dosage: 234 MG, 2X/DAY
     Dates: start: 20200724, end: 20200725
  3. VFEND [Concomitant]
     Active Substance: VORICONAZOLE
     Dosage: 156 MG, 2X/DAY
     Dates: start: 20200725
  4. CALCIUM CARBONATE. [Concomitant]
     Active Substance: CALCIUM CARBONATE
     Indication: BLOOD CALCIUM DECREASED
     Dosage: UNK
     Route: 048
     Dates: start: 20200706, end: 20200712
  5. MEROPENEM. [Suspect]
     Active Substance: MEROPENEM
     Indication: SEPSIS
  6. DAUNORUBICIN [Concomitant]
     Active Substance: DAUNORUBICIN
     Indication: CHEMOTHERAPY
     Dosage: UNK
     Route: 042
     Dates: start: 20200701, end: 20200705
  7. CYTOSINE ARABINOSIDE [Concomitant]
     Active Substance: CYTARABINE
     Indication: CHEMOTHERAPY
     Dosage: UNK
     Route: 042
     Dates: start: 20200701, end: 20200705
  8. FLUCONAZOLE. [Concomitant]
     Active Substance: FLUCONAZOLE
     Indication: PROPHYLAXIS
     Dosage: UNK
     Route: 048
     Dates: start: 20200601, end: 20200724

REACTIONS (1)
  - Drug ineffective [Fatal]
